FAERS Safety Report 8575800 (Version 2)
Quarter: 2013Q1

REPORT INFORMATION
  Report Type: Not Available
  Country: CZ (occurrence: CZ)
  Receive Date: 20120523
  Receipt Date: 20130321
  Transmission Date: 20140127
  Serious: Yes (Hospitalization)
  Sender: FDA-Public Use
  Company Number: CZ-NAPPMUNDI-DEU-2012-0008942

PATIENT
  Age: 84 Year
  Sex: Female

DRUGS (4)
  1. OXYCONTIN 10 MG [Suspect]
     Indication: PRODUCT USED FOR UNKNOWN INDICATION
     Dosage: 10 MG, DAILY
     Route: 048
  2. PARALEN                            /00020001/ [Concomitant]
     Indication: PRODUCT USED FOR UNKNOWN INDICATION
     Route: 065
  3. CERUCAL [Concomitant]
     Indication: PRODUCT USED FOR UNKNOWN INDICATION
     Route: 065
  4. MELOVIS [Concomitant]
     Indication: PRODUCT USED FOR UNKNOWN INDICATION
     Route: 065

REACTIONS (1)
  - Dermatitis allergic [Recovered/Resolved]
